FAERS Safety Report 5287945-8 (Version None)
Quarter: 2007Q2

REPORT INFORMATION
  Report Type: 
  Country: None (occurrence: None)
  Receive Date: 20070405
  Receipt Date: 20070327
  Transmission Date: 20071010
  Serious: Yes (Life-Threatening)
  Sender: FDA-Public Use
  Company Number: NL-JNJFOC-20070306752

PATIENT
  Sex: Female
  Weight: 60 kg

DRUGS (1)
  1. HALDOL [Suspect]
     Indication: TENSION
     Route: 065

REACTIONS (3)
  - DRUG EXPOSURE DURING PREGNANCY [None]
  - PREMATURE LABOUR [None]
  - SUICIDAL IDEATION [None]
